FAERS Safety Report 17743663 (Version 1)
Quarter: 2020Q2

REPORT INFORMATION
  Report Type: Spontaneous
  Country: US (occurrence: US)
  Receive Date: 20200505
  Receipt Date: 20200505
  Transmission Date: 20200714
  Serious: Yes (Other)
  Sender: FDA-Public Use
  Company Number: US-SA-2020SA114361

PATIENT
  Age: 28 Year
  Sex: Female

DRUGS (1)
  1. DUPIXENT [Suspect]
     Active Substance: DUPILUMAB
     Indication: DERMATITIS ATOPIC
     Dosage: UNK
     Dates: start: 20181120

REACTIONS (4)
  - Cataract [Unknown]
  - Vision blurred [Unknown]
  - Dry eye [Not Recovered/Not Resolved]
  - Eye discharge [Unknown]

NARRATIVE: CASE EVENT DATE: 201903
